FAERS Safety Report 6547713-3 (Version None)
Quarter: 2010Q1

REPORT INFORMATION
  Report Type: 
  Country: None (occurrence: None)
  Receive Date: 20100123
  Receipt Date: 20100115
  Transmission Date: 20100710
  Serious: Yes (Other)
  Sender: FDA-Public Use
  Company Number: US-JNJFOC-20061006075

PATIENT
  Sex: Male

DRUGS (6)
  1. RISPERDAL [Suspect]
     Indication: DEPRESSION
  2. CLONIDINE [Concomitant]
  3. DOXEPIN HCL [Concomitant]
  4. VISTARIL [Concomitant]
  5. PROZAC [Concomitant]
  6. KLONOPIN [Concomitant]

REACTIONS (2)
  - HYPOAESTHESIA [None]
  - TYPE 2 DIABETES MELLITUS [None]
